FAERS Safety Report 5432223-7 (Version None)
Quarter: 2007Q3

REPORT INFORMATION
  Report Type: 
  Country: None (occurrence: None)
  Receive Date: 20070830
  Receipt Date: 20070820
  Transmission Date: 20080115
  Serious: Yes (Other)
  Sender: FDA-Public Use
  Company Number: JP-PFIZER INC-2007069971

PATIENT
  Age: 83 Year
  Sex: Male

DRUGS (12)
  1. DETRUSITOL LA [Suspect]
     Dates: start: 20070501, end: 20070701
  2. BABYPRIN [Concomitant]
  3. ALFAROL [Concomitant]
  4. RABEPRAZOLE SODIUM [Concomitant]
  5. CLONAZEPAM [Concomitant]
  6. PRAMIPEXOLE DIHYDROCHLORIDE [Concomitant]
  7. NICERGOLINE [Concomitant]
  8. HYDERGINE [Concomitant]
  9. JUVELA [Concomitant]
  10. SELEGILINE HCL [Concomitant]
  11. LENDORMIN [Concomitant]
  12. CARBIDOPA AND LEVODOPA [Concomitant]

REACTIONS (2)
  - AGITATION [None]
  - DELIRIUM [None]
